FAERS Safety Report 10064253 (Version 1)
Quarter: 2014Q2

REPORT INFORMATION
  Report Type: Spontaneous
  Country: US (occurrence: None)
  Receive Date: 20140407
  Receipt Date: 20140407
  Transmission Date: 20141212
  Serious: Yes (Hospitalization)
  Sender: FDA-Public Use
  Company Number: None

PATIENT
  Age: 80 Year
  Sex: Male
  Weight: 87.4 kg

DRUGS (7)
  1. PACLITAXEL (TAXOL) [Suspect]
     Indication: OESOPHAGEAL CARCINOMA
     Dosage: 4 CC OF 266.67CC TOTAL 266.67 ML/HR IV
     Route: 042
     Dates: start: 20140313, end: 20140327
  2. METFORMIN [Concomitant]
  3. PROCHLORPERAZINE [Concomitant]
  4. LISINOPRIL [Concomitant]
  5. OMEPRAZOLE [Concomitant]
  6. DEXAMETHASONR [Concomitant]
  7. CRANISETRON [Concomitant]

REACTIONS (5)
  - Flushing [None]
  - Unresponsive to stimuli [None]
  - Drug hypersensitivity [None]
  - Faecal incontinence [None]
  - Urinary incontinence [None]
